FAERS Safety Report 9356848 (Version 1)
Quarter: 2013Q2

REPORT INFORMATION
  Report Type: Spontaneous
  Country: CA (occurrence: CA)
  Receive Date: 20130620
  Receipt Date: 20130620
  Transmission Date: 20140414
  Serious: Yes (Other)
  Sender: FDA-Public Use
  Company Number: CA-AMGEN-CANSP2013042912

PATIENT
  Age: 68 Year
  Sex: Female

DRUGS (5)
  1. ENBREL [Suspect]
     Indication: RHEUMATOID ARTHRITIS
     Dosage: 50 MG, UNK
     Route: 065
     Dates: start: 20120424, end: 201208
  2. PREDNISONE [Concomitant]
     Dosage: 4 MG, UNK
  3. SYNTHROID [Concomitant]
     Dosage: UNK
  4. METFORMIN [Concomitant]
     Dosage: UNK
  5. PANTOLOC                           /01263204/ [Concomitant]
     Dosage: UNK

REACTIONS (5)
  - Pericarditis [Unknown]
  - Fatigue [Unknown]
  - Ejection fraction decreased [Not Recovered/Not Resolved]
  - Immune system disorder [Unknown]
  - Influenza [Not Recovered/Not Resolved]
